FAERS Safety Report 17417144 (Version 1)
Quarter: 2020Q1

REPORT INFORMATION
  Report Type: Report from Study
  Country: AR (occurrence: AR)
  Receive Date: 20200214
  Receipt Date: 20200214
  Transmission Date: 20200409
  Serious: Yes (Hospitalization)
  Sender: FDA-Public Use
  Company Number: AR-BIOGEN-2020BI00837510

PATIENT
  Age: 35 Year
  Sex: Female

DRUGS (7)
  1. DROSPIRENONE [Concomitant]
     Active Substance: DROSPIRENONE
     Indication: PRODUCT USED FOR UNKNOWN INDICATION
     Route: 048
  2. LEVOTHYROXINE. [Concomitant]
     Active Substance: LEVOTHYROXINE
     Indication: PRODUCT USED FOR UNKNOWN INDICATION
     Route: 048
  3. KETOROLAC [Concomitant]
     Active Substance: KETOROLAC TROMETHAMINE
     Dosage: EVERY 8HS FOR 3 DAYS AND EVERY 12HS FOR 2 DAYS
     Route: 048
  4. TECFIDERA [Suspect]
     Active Substance: DIMETHYL FUMARATE
     Indication: MULTIPLE SCLEROSIS
     Dosage: SARTING DOSE
     Route: 048
     Dates: start: 20170215, end: 20170221
  5. ETHINYL ESTRADIOL [Concomitant]
     Active Substance: ETHINYL ESTRADIOL
     Indication: PRODUCT USED FOR UNKNOWN INDICATION
     Route: 048
  6. TECFIDERA [Suspect]
     Active Substance: DIMETHYL FUMARATE
     Dosage: MAINTENANCE DOSE
     Route: 048
     Dates: start: 20170222
  7. KETOROLAC [Concomitant]
     Active Substance: KETOROLAC TROMETHAMINE
     Indication: PRODUCT USED FOR UNKNOWN INDICATION
     Dosage: EVERY 8HS FOR 3 DAYS AND EVERY 12HS FOR 2 DAYS
     Route: 048

REACTIONS (1)
  - Ovarian cyst [Recovered/Resolved with Sequelae]

NARRATIVE: CASE EVENT DATE: 201912
